FAERS Safety Report 22198911 (Version 3)
Quarter: 2023Q2

REPORT INFORMATION
  Report Type: Spontaneous
  Country: FR (occurrence: FR)
  Receive Date: 20230411
  Receipt Date: 20230426
  Transmission Date: 20230722
  Serious: Yes (Other)
  Sender: FDA-Public Use
  Company Number: FR-PFIZER INC-PV202300056994

PATIENT
  Age: 74 Year
  Sex: Male

DRUGS (2)
  1. LETROZOLE [Suspect]
     Active Substance: LETROZOLE
     Indication: Breast cancer
     Dosage: UNK
     Route: 065
  2. PALBOCICLIB [Suspect]
     Active Substance: PALBOCICLIB
     Indication: Breast cancer
     Dosage: UNK
     Route: 065

REACTIONS (14)
  - Erectile dysfunction [Unknown]
  - Oesophageal pain [Recovered/Resolved]
  - Diarrhoea [Recovered/Resolved]
  - Fatigue [Not Recovered/Not Resolved]
  - Decreased appetite [Recovered/Resolved]
  - Anxiety [Unknown]
  - Dysgeusia [Recovered/Resolved]
  - Vision blurred [Unknown]
  - Constipation [Unknown]
  - Nausea [Unknown]
  - Insomnia [Recovered/Resolved]
  - Palpitations [Unknown]
  - Dry skin [Unknown]
  - Dyspnoea [Unknown]
